FAERS Safety Report 7678446-8 (Version None)
Quarter: 2011Q3

REPORT INFORMATION
  Report Type: 
  Country: None (occurrence: None)
  Receive Date: 20110811
  Receipt Date: 20110803
  Transmission Date: 20111222
  Serious: Yes (Other)
  Sender: FDA-Public Use
  Company Number: US-BAYER-2011-027747

PATIENT
  Age: 32 Year
  Sex: Female
  Weight: 86.168 kg

DRUGS (8)
  1. YAZ [Suspect]
     Indication: PREMENSTRUAL SYNDROME
     Dosage: UNK
     Route: 048
     Dates: start: 20040101, end: 20080101
  2. ANTIDEPRESSANTS [Concomitant]
  3. MULTI-VITAMIN [Concomitant]
     Indication: VITAMIN SUPPLEMENTATION
     Dosage: 1 DF, QD
     Route: 048
  4. YAZ [Suspect]
     Dosage: UNK
     Route: 048
     Dates: start: 20090801, end: 20100101
  5. YASMIN [Suspect]
     Dosage: UNK
     Route: 048
     Dates: start: 20090801, end: 20100101
  6. LORAZEPAM [Concomitant]
     Dosage: 1 MG, UNK
     Route: 048
  7. YASMIN [Suspect]
     Indication: PREMENSTRUAL SYNDROME
     Dosage: UNK
     Route: 048
     Dates: start: 20040101, end: 20080101
  8. NEFAZODONE HCL [Concomitant]
     Dosage: 50 MG, UNK
     Route: 048

REACTIONS (5)
  - GALLBLADDER DISORDER [None]
  - CHOLELITHIASIS [None]
  - PAIN [None]
  - INJURY [None]
  - CHOLECYSTITIS [None]
